FAERS Safety Report 4523755-4 (Version None)
Quarter: 2004Q4

REPORT INFORMATION
  Report Type: 
  Country: None (occurrence: None)
  Receive Date: 20041101
  Receipt Date: 20040119
  Transmission Date: 20050328
  Serious: Yes (Other)
  Sender: FDA-Public Use
  Company Number: HQWYE480720JAN04

PATIENT
  Sex: Female

DRUGS (2)
  1. PREMARIN [Suspect]
     Dosage: 1.25 MG DAILY, ORAL
     Route: 048
     Dates: start: 19780101, end: 20030101
  2. PROVERA [Concomitant]

REACTIONS (2)
  - FLUID RETENTION [None]
  - PULMONARY EMBOLISM [None]
